FAERS Safety Report 22757390 (Version 4)
Quarter: 2025Q3

REPORT INFORMATION
  Report Type: Report from Study
  Country: US (occurrence: US)
  Receive Date: 20230727
  Receipt Date: 20250730
  Transmission Date: 20251020
  Serious: Yes (Other)
  Sender: UCB
  Company Number: US-UCBSA-2023034337

PATIENT
  Age: 16 Year
  Sex: Female
  Weight: 58.05 kg

DRUGS (10)
  1. FINTEPLA [Suspect]
     Active Substance: FENFLURAMINE
     Indication: Lennox-Gastaut syndrome
     Dates: start: 20210820, end: 2023
  2. FINTEPLA [Suspect]
     Active Substance: FENFLURAMINE
     Dosage: 22 MILLIGRAM, ONCE DAILY (QD), 0.7 MG/KG/DAY
     Route: 048
     Dates: start: 20220415
  3. FINTEPLA [Suspect]
     Active Substance: FENFLURAMINE
     Dosage: 12 MILLIGRAM, ONCE DAILY (QD), 0.6 MG/KG/DAY
     Route: 048
     Dates: start: 20221017
  4. ERGOCALCIFEROL [Concomitant]
     Active Substance: ERGOCALCIFEROL
     Indication: Vitamin D deficiency
     Route: 048
  5. DEPAKOTE [Concomitant]
     Active Substance: DIVALPROEX SODIUM
     Indication: Product used for unknown indication
     Dosage: 3 DOSAGE FORM, ONCE DAILY (QD)
     Route: 048
  6. BANZEL [Concomitant]
     Active Substance: RUFINAMIDE
     Indication: Product used for unknown indication
     Dosage: 2 DOSAGE FORM, 2X/DAY (BID) GIVE ^JAYDE^2 TABLET EVERY MORNING AND 2 TABLETS EVERY NIGHT AT BEDTIME
  7. KLONOPIN [Concomitant]
     Active Substance: CLONAZEPAM
     Indication: Product used for unknown indication
     Dosage: 2 DOSAGE FORM, ONCE DAILY (QD), V
  8. FELBAMATE [Concomitant]
     Active Substance: FELBAMATE
     Indication: Product used for unknown indication
     Dosage: 1 DOSAGE FORM, 2X/DAY (BID), V
     Route: 048
  9. FERROUS SULFATE EXSICCATED [Concomitant]
     Indication: Product used for unknown indication
  10. SENNA COMBINATION [Concomitant]
     Indication: Product used for unknown indication

REACTIONS (4)
  - Mitral valve incompetence [Unknown]
  - Decreased appetite [Recovered/Resolved]
  - Weight decreased [Unknown]
  - Lethargy [Unknown]

NARRATIVE: CASE EVENT DATE: 20230701
